FAERS Safety Report 14411690 (Version 1)
Quarter: 2018Q1

REPORT INFORMATION
  Report Type: Not Available
  Country: AU (occurrence: AU)
  Receive Date: 20180119
  Receipt Date: 20180119
  Transmission Date: 20180509
  Serious: Yes (Other)
  Sender: FDA-Public Use
  Company Number: AU-ANIPHARMA-2018-AU-000003

PATIENT
  Age: 64 Year
  Sex: Female

DRUGS (1)
  1. FLECAINIDE ACETATE (NON-SPECIFIC) [Suspect]
     Active Substance: FLECAINIDE ACETATE
     Dosage: 600 MG ONCE
     Route: 048

REACTIONS (2)
  - Accidental overdose [Unknown]
  - Electrocardiogram abnormal [Unknown]
